FAERS Safety Report 11688297 (Version 1)
Quarter: 2015Q4

REPORT INFORMATION
  Report Type: Spontaneous
  Country: FR (occurrence: FR)
  Receive Date: 20151030
  Receipt Date: 20151030
  Transmission Date: 20160304
  Serious: Yes (Life-Threatening, Hospitalization, Other)
  Sender: FDA-Public Use
  Company Number: FR-ASTRAZENECA-2015SF05447

PATIENT
  Age: 21762 Day
  Sex: Male

DRUGS (9)
  1. FLUVASTATIN [Concomitant]
     Active Substance: FLUVASTATIN SODIUM
  2. XEROQUEL [Suspect]
     Active Substance: QUETIAPINE FUMARATE
     Route: 048
     Dates: start: 20150715, end: 20150715
  3. EFFERALGAN [Concomitant]
     Active Substance: ACETAMINOPHEN
  4. LAROXYL [Suspect]
     Active Substance: AMITRIPTYLINE
     Route: 048
     Dates: start: 20150715, end: 20150715
  5. GAVISCON [Concomitant]
     Active Substance: ALUMINUM HYDROXIDE\MAGNESIUM CARBONATE
  6. STILNOX [Suspect]
     Active Substance: ZOLPIDEM TARTRATE
     Route: 048
     Dates: start: 20150715, end: 20150715
  7. FINASTERIDE. [Concomitant]
     Active Substance: FINASTERIDE
  8. SILODOSIN [Concomitant]
     Active Substance: SILODOSIN
  9. PRAZEPAM [Suspect]
     Active Substance: PRAZEPAM
     Route: 048
     Dates: start: 20150715, end: 20150715

REACTIONS (7)
  - Toxicity to various agents [Recovered/Resolved]
  - Blood creatine phosphokinase increased [Recovered/Resolved]
  - Electrocardiogram abnormal [Recovered/Resolved]
  - Tachycardia [Recovered/Resolved]
  - Poisoning deliberate [Recovered/Resolved]
  - Coma [Recovered/Resolved]
  - Coma scale abnormal [Recovered/Resolved]

NARRATIVE: CASE EVENT DATE: 20150715
